FAERS Safety Report 7108622-4 (Version None)
Quarter: 2010Q4

REPORT INFORMATION
  Report Type: 
  Country: None (occurrence: None)
  Receive Date: 20101115
  Receipt Date: 20101115
  Transmission Date: 20110411
  Serious: Yes (Other)
  Sender: FDA-Public Use
  Company Number: None

PATIENT
  Age: 51 Year
  Sex: Female
  Weight: 56.8 kg

DRUGS (3)
  1. BOTULINUM TOXIN [Suspect]
     Indication: SKIN WRINKLING
     Dosage: 3-4 MONTHS
     Dates: start: 20100303
  2. BOTULINUM TOXIN [Suspect]
     Indication: SKIN WRINKLING
     Dosage: 3-4 MONTHS
     Dates: start: 20100604
  3. BOTULINUM TOXIN [Suspect]
     Indication: SKIN WRINKLING
     Dosage: 3-4 MONTHS
     Dates: start: 20101001

REACTIONS (2)
  - EYELID PTOSIS [None]
  - HYPERSENSITIVITY [None]
